FAERS Safety Report 22309891 (Version 2)
Quarter: 2023Q2

REPORT INFORMATION
  Report Type: Spontaneous
  Country: US (occurrence: US)
  Receive Date: 20230511
  Receipt Date: 20230515
  Transmission Date: 20230722
  Serious: Yes (Hospitalization)
  Sender: FDA-Public Use
  Company Number: US-TORRENT-00012641

PATIENT
  Age: 16 Year
  Sex: Male

DRUGS (8)
  1. ARIPIPRAZOLE [Suspect]
     Active Substance: ARIPIPRAZOLE
     Indication: Aggression
     Dosage: 5 MG PO DAILY
     Route: 048
  2. RISPERIDONE [Suspect]
     Active Substance: RISPERIDONE
     Indication: Aggression
     Dosage: 1 MG PO QHS
     Route: 048
  3. CLONIDINE [Suspect]
     Active Substance: CLONIDINE
     Indication: Impulsive behaviour
     Dosage: 0.1 MG PO BID
     Route: 048
  4. HYDROXYZINE [Suspect]
     Active Substance: HYDROXYZINE HYDROCHLORIDE
     Indication: Insomnia
     Dosage: 50 MG PO QHS
     Route: 048
  5. LORAZEPAM [Suspect]
     Active Substance: LORAZEPAM
     Indication: Sleep disorder
     Dosage: 1 MG PO QHS
     Route: 065
  6. MIRTAZAPINE [Suspect]
     Active Substance: MIRTAZAPINE
     Indication: Mood altered
     Dosage: 15 MG PO QHS, EVERY NIGHT AT BEDTIME
     Route: 048
  7. SERTRALINE [Suspect]
     Active Substance: SERTRALINE HYDROCHLORIDE
     Indication: Impulsive behaviour
     Dosage: 25 MG PO DAILY
     Route: 048
  8. ZONISAMIDE [Suspect]
     Active Substance: ZONISAMIDE
     Indication: Anger
     Dosage: 50 MG PO DAILY
     Route: 048

REACTIONS (2)
  - Muscle spasms [Unknown]
  - Aggression [Recovered/Resolved]
